FAERS Safety Report 18604032 (Version 1)
Quarter: 2020Q4

REPORT INFORMATION
  Report Type: Spontaneous
  Country: DE (occurrence: DE)
  Receive Date: 20201211
  Receipt Date: 20201211
  Transmission Date: 20210114
  Serious: Yes (Other)
  Sender: FDA-Public Use
  Company Number: DE-TEVA-2020-DE-1856883

PATIENT
  Sex: Female

DRUGS (1)
  1. COTRIM FORTE 960 MG [Suspect]
     Active Substance: SULFAMETHOXAZOLE\TRIMETHOPRIM
     Dosage: 1 TABLET CONTAINS 800 MG SULFAMETHOXAZOLE AND 160 MG TRIMETHOPRIM
     Route: 048

REACTIONS (3)
  - Choking [Unknown]
  - Product use complaint [Unknown]
  - Fear [Unknown]
